FAERS Safety Report 8478829-2 (Version None)
Quarter: 2012Q2

REPORT INFORMATION
  Report Type: 
  Country: None (occurrence: None)
  Receive Date: 20120629
  Receipt Date: 20120622
  Transmission Date: 20120825
  Serious: Yes (Other)
  Sender: FDA-Public Use
  Company Number: CA-ROCHE-1080386

PATIENT
  Sex: Female
  Weight: 55 kg

DRUGS (4)
  1. DEMEROL [Concomitant]
     Indication: MIGRAINE
     Route: 048
  2. PEGASYS [Suspect]
     Indication: HEPATITIS C
     Route: 058
     Dates: start: 20120206, end: 20120618
  3. COPEGUS [Suspect]
     Indication: HEPATITIS C
     Route: 048
     Dates: start: 20120206, end: 20120618
  4. TRAZODONE HCL [Concomitant]
     Indication: DEPRESSION
     Route: 048

REACTIONS (2)
  - RETINAL HAEMORRHAGE [None]
  - INTRAOCULAR LENS IMPLANT [None]
